FAERS Safety Report 6238516-8 (Version None)
Quarter: 2009Q2

REPORT INFORMATION
  Report Type: 
  Country: None (occurrence: None)
  Receive Date: 20090622
  Receipt Date: 20090612
  Transmission Date: 20091009
  Serious: Yes (Disabling)
  Sender: FDA-Public Use
  Company Number: FR-SOLVAY-00209003151

PATIENT
  Age: 603 Month
  Sex: Male
  Weight: 110 kg

DRUGS (1)
  1. COVERSYL 8 MG [Suspect]
     Indication: HYPERTENSION
     Dosage: DAILY DOSE: 8 MILLIGRAM(S)
     Route: 048
     Dates: start: 20080501, end: 20081201

REACTIONS (4)
  - ARTHRALGIA [None]
  - BONE PAIN [None]
  - JOINT EFFUSION [None]
  - MYALGIA [None]
